FAERS Safety Report 11126847 (Version 1)
Quarter: 2015Q2

REPORT INFORMATION
  Report Type: Report from Study
  Country: GB (occurrence: GB)
  Receive Date: 20150520
  Receipt Date: 20150520
  Transmission Date: 20150821
  Serious: Yes (Death, Other)
  Sender: FDA-Public Use
  Company Number: GB-GILEAD-2014-0123753

PATIENT
  Age: 56 Year
  Sex: Male

DRUGS (2)
  1. RIBAVIRIN. [Concomitant]
     Active Substance: RIBAVIRIN
     Indication: HEPATITIS C
     Dosage: 1.2 G, QD
     Route: 048
     Dates: start: 20140729, end: 20141020
  2. LEDIPASVIR/SOFOSBUVIR [Suspect]
     Active Substance: LEDIPASVIR\SOFOSBUVIR
     Indication: HEPATITIS C
     Dosage: 1 DF, QD
     Route: 048
     Dates: start: 20140729, end: 20141020

REACTIONS (8)
  - Death [Fatal]
  - Peripheral swelling [Not Recovered/Not Resolved]
  - Joint swelling [Not Recovered/Not Resolved]
  - Staphylococcal bacteraemia [Unknown]
  - Gout [Not Recovered/Not Resolved]
  - Arteriosclerosis coronary artery [Unknown]
  - Myalgia [Not Recovered/Not Resolved]
  - Arthritis bacterial [Unknown]

NARRATIVE: CASE EVENT DATE: 20140811
